FAERS Safety Report 17243762 (Version 1)
Quarter: 2020Q1

REPORT INFORMATION
  Report Type: Spontaneous
  Country: US (occurrence: US)
  Receive Date: 20200107
  Receipt Date: 20200107
  Transmission Date: 20200409
  Serious: No
  Sender: FDA-Public Use
  Company Number: US-ROCHE-2326511

PATIENT
  Age: 26 Year
  Sex: Female
  Weight: 64.4 kg

DRUGS (2)
  1. ACTILYSE [Suspect]
     Active Substance: ALTEPLASE
     Indication: ISCHAEMIC STROKE
     Dosage: 10% OF DOSE
     Route: 040
  2. ACTILYSE [Suspect]
     Active Substance: ALTEPLASE
     Dosage: REMAINDER DOSE INFUSED OVER 60 MINUTES
     Route: 041

REACTIONS (2)
  - No adverse event [Unknown]
  - Pregnancy [Unknown]
